FAERS Safety Report 4785475-0 (Version None)
Quarter: 2005Q3

REPORT INFORMATION
  Report Type: 
  Country: None (occurrence: None)
  Receive Date: 20050929
  Receipt Date: 20050919
  Transmission Date: 20060218
  Serious: Yes (Hospitalization)
  Sender: FDA-Public Use
  Company Number: 2005BI017561

PATIENT
  Age: 52 Year
  Sex: Male
  Weight: 86.1834 kg

DRUGS (4)
  1. AVONEX [Suspect]
     Indication: MULTIPLE SCLEROSIS
     Dosage: 30 UG; QW; IM
     Route: 030
     Dates: start: 19990427, end: 20030801
  2. AVONEX [Suspect]
     Indication: MULTIPLE SCLEROSIS
     Dosage: 30 UG; QW; IM
     Route: 030
     Dates: start: 20030801
  3. PROVIGIL [Concomitant]
  4. NEURONTIN [Concomitant]

REACTIONS (8)
  - CARDIAC OPERATION [None]
  - COGNITIVE DISORDER [None]
  - HEPATIC ENZYME INCREASED [None]
  - JOINT LOCK [None]
  - MITRAL VALVE INCOMPETENCE [None]
  - MOBILITY DECREASED [None]
  - POST PROCEDURAL COMPLICATION [None]
  - WEIGHT DECREASED [None]
